FAERS Safety Report 4939945-2 (Version None)
Quarter: 2006Q1

REPORT INFORMATION
  Report Type: 
  Country: None (occurrence: None)
  Receive Date: 20060310
  Receipt Date: 20060303
  Transmission Date: 20060701
  Serious: Yes (Hospitalization)
  Sender: FDA-Public Use
  Company Number: JP-JPN-A200600844

PATIENT
  Age: 73 Year
  Sex: Male

DRUGS (16)
  1. EPIVIR [Suspect]
     Indication: ACQUIRED IMMUNODEFICIENCY SYNDROME
     Dosage: 150MG TWICE PER DAY
     Route: 048
     Dates: start: 20000926
  2. RETROVIR [Suspect]
     Indication: ACQUIRED IMMUNODEFICIENCY SYNDROME
     Route: 048
     Dates: start: 20000926, end: 20020404
  3. ZERIT [Suspect]
     Indication: ACQUIRED IMMUNODEFICIENCY SYNDROME
     Route: 048
     Dates: start: 20020405
  4. VIRAMUNE [Suspect]
     Indication: ACQUIRED IMMUNODEFICIENCY SYNDROME
     Route: 048
     Dates: start: 20000926
  5. ISCOTIN [Suspect]
     Indication: LYMPHADENITIS
     Dosage: 300MG PER DAY
     Route: 065
     Dates: start: 20010209, end: 20020419
  6. RIFAMPICIN [Suspect]
     Indication: LYMPHADENITIS
     Dosage: 450MG PER DAY
     Route: 048
     Dates: start: 20010209, end: 20020419
  7. ETHAMBUTOL HCL [Suspect]
     Indication: LYMPHADENITIS
     Dosage: 750MG PER DAY
     Route: 048
     Dates: start: 20010209, end: 20010523
  8. PYRAZINAMIDE [Suspect]
     Indication: LYMPHADENITIS
     Dosage: 800MG PER DAY
     Route: 048
     Dates: start: 20010209, end: 20010523
  9. CLARITHROMYCIN [Concomitant]
     Indication: PNEUMONIA
     Dosage: 200MG PER DAY
     Route: 048
     Dates: start: 20000628, end: 20000702
  10. TENORMIN [Concomitant]
     Indication: HYPERTENSION
     Dosage: 50MG PER DAY
     Route: 048
     Dates: start: 20000512, end: 20000626
  11. RENIVACE [Concomitant]
     Indication: HYPERTENSION
     Route: 048
     Dates: start: 20000512
  12. COTRIM [Concomitant]
     Route: 048
     Dates: start: 20000825, end: 20010712
  13. UNASYN [Concomitant]
     Indication: PNEUMONIA
     Dosage: 1.5G THREE TIMES PER DAY
     Route: 065
     Dates: start: 20000628, end: 20000712
  14. VICCILLIN [Concomitant]
     Indication: SYPHILIS
     Dosage: 2G FOUR TIMES PER DAY
     Route: 065
     Dates: start: 20000725, end: 20000807
  15. GASMOTIN [Concomitant]
     Dosage: 5MG THREE TIMES PER DAY
     Route: 048
     Dates: start: 20030520
  16. MAGNESIUM OXIDE [Concomitant]
     Indication: POST GASTRIC SURGERY SYNDROME
     Dosage: .5G THREE TIMES PER DAY
     Route: 048
     Dates: start: 20030520

REACTIONS (13)
  - ABDOMINAL PAIN [None]
  - ABNORMAL BEHAVIOUR [None]
  - ANAEMIA [None]
  - CEREBRAL HAEMORRHAGE [None]
  - DIVERTICULITIS [None]
  - DIZZINESS [None]
  - DYSPNOEA [None]
  - GASTRIC CANCER [None]
  - LYMPH NODE TUBERCULOSIS [None]
  - PYREXIA [None]
  - SEPSIS [None]
  - SPEECH DISORDER [None]
  - STREPTOCOCCAL INFECTION [None]
